FAERS Safety Report 5509684-8 (Version None)
Quarter: 2007Q4

REPORT INFORMATION
  Report Type: 
  Country: None (occurrence: None)
  Receive Date: 20071107
  Receipt Date: 20071107
  Transmission Date: 20080405
  Serious: Yes (Hospitalization)
  Sender: FDA-Public Use
  Company Number: None

PATIENT
  Age: 42 Year
  Sex: Male
  Weight: 94.3482 kg

DRUGS (9)
  1. IBUPROFEN TABLETS [Suspect]
     Indication: HEADACHE
     Dosage: 200 MG PRN PO
     Route: 048
  2. IBUPROFEN TABLETS [Suspect]
     Indication: PAIN
     Dosage: 200 MG PRN PO
     Route: 048
  3. IBUPROFEN [Concomitant]
  4. CLARITIN-D [Concomitant]
  5. FAMOTIDINE [Concomitant]
  6. ATAZANAVIR SULFATE [Concomitant]
  7. LAMIVUDINE [Concomitant]
  8. RITONAVIR [Concomitant]
  9. STAVUDINE [Concomitant]

REACTIONS (8)
  - DIARRHOEA [None]
  - DIZZINESS [None]
  - DRUG INTERACTION [None]
  - EROSIVE OESOPHAGITIS [None]
  - GASTROINTESTINAL HAEMORRHAGE [None]
  - NAUSEA [None]
  - ORTHOSTATIC HYPOTENSION [None]
  - VOMITING [None]
